FAERS Safety Report 20807226 (Version 1)
Quarter: 2022Q2

REPORT INFORMATION
  Report Type: Report from Study
  Country: GB (occurrence: GB)
  Receive Date: 20220510
  Receipt Date: 20220510
  Transmission Date: 20220721
  Serious: Yes (Hospitalization, Other)
  Sender: FDA-Public Use
  Company Number: GB-CELLTRION INC.-2022GB001895

PATIENT

DRUGS (47)
  1. TRASTUZUMAB [Suspect]
     Active Substance: TRASTUZUMAB
     Indication: Breast cancer metastatic
     Dosage: 283.5 MG
     Route: 041
     Dates: start: 20171003, end: 20180502
  2. TRASTUZUMAB [Suspect]
     Active Substance: TRASTUZUMAB
     Dosage: 283.5 MG
     Route: 041
     Dates: start: 20171003, end: 20180502
  3. TRASTUZUMAB [Suspect]
     Active Substance: TRASTUZUMAB
     Dosage: 315 MG
     Route: 041
     Dates: start: 20170711, end: 20170801
  4. TRASTUZUMAB [Suspect]
     Active Substance: TRASTUZUMAB
     Dosage: 315 MG
     Route: 041
     Dates: start: 20170711, end: 20170801
  5. TRASTUZUMAB [Suspect]
     Active Substance: TRASTUZUMAB
     Dosage: 420 MG
     Route: 041
     Dates: start: 20170619, end: 20170619
  6. TRASTUZUMAB [Suspect]
     Active Substance: TRASTUZUMAB
     Dosage: 420 MG
     Route: 041
     Dates: start: 20170619, end: 20170619
  7. TRASTUZUMAB [Suspect]
     Active Substance: TRASTUZUMAB
     Dosage: 294 MG
     Route: 041
     Dates: start: 20170822, end: 20170916
  8. TRASTUZUMAB [Suspect]
     Active Substance: TRASTUZUMAB
     Dosage: 294 MG
     Route: 041
     Dates: start: 20170822, end: 20170916
  9. TRASTUZUMAB [Suspect]
     Active Substance: TRASTUZUMAB
     Dosage: 283.5 MG
     Route: 041
     Dates: start: 20180709, end: 20180820
  10. TRASTUZUMAB [Suspect]
     Active Substance: TRASTUZUMAB
     Dosage: 283.5 MG
     Route: 041
     Dates: start: 20180709, end: 20180820
  11. TRASTUZUMAB [Suspect]
     Active Substance: TRASTUZUMAB
     Dosage: 388.5 MG
     Route: 041
     Dates: start: 20180618, end: 20180618
  12. TRASTUZUMAB [Suspect]
     Active Substance: TRASTUZUMAB
     Dosage: 388.5 MG
     Route: 041
     Dates: start: 20180618, end: 20180618
  13. CAPECITABINE [Suspect]
     Active Substance: CAPECITABINE
     Indication: Breast cancer metastatic
     Dosage: 1150 MG
     Route: 048
     Dates: start: 20211013
  14. DOCETAXEL [Suspect]
     Active Substance: DOCETAXEL
     Indication: Breast cancer metastatic
     Dosage: 108 MG, EVERY 3 WEEKS
     Route: 042
     Dates: start: 20170620, end: 20170801
  15. DOCETAXEL [Suspect]
     Active Substance: DOCETAXEL
     Dosage: 108 MG, EVERY 3 WEEKS
     Route: 042
     Dates: start: 20170620, end: 20170801
  16. DOCETAXEL [Suspect]
     Active Substance: DOCETAXEL
     Dosage: 88 MG, EVERY 3 WEEKS
     Route: 042
     Dates: start: 20170822, end: 20171003
  17. DOCETAXEL [Suspect]
     Active Substance: DOCETAXEL
     Dosage: 88 MG, EVERY 3 WEEKS
     Route: 042
     Dates: start: 20170822, end: 20171003
  18. NERATINIB [Suspect]
     Active Substance: NERATINIB
     Indication: Breast cancer metastatic
     Dosage: 240 MG, QD
     Route: 048
     Dates: start: 20211013
  19. PERTUZUMAB [Suspect]
     Active Substance: PERTUZUMAB
     Indication: Breast cancer metastatic
     Dosage: 420 MG, EVERY 3 WEEKS
     Route: 042
     Dates: start: 20170711, end: 20180502
  20. PERTUZUMAB [Suspect]
     Active Substance: PERTUZUMAB
     Dosage: 420 MG, EVERY 3 WEEKS
     Route: 042
     Dates: start: 20170711, end: 20180502
  21. PERTUZUMAB [Suspect]
     Active Substance: PERTUZUMAB
     Dosage: 420 MG, EVERY 3 WEEKS
     Route: 042
     Dates: start: 20180618, end: 20180618
  22. PERTUZUMAB [Suspect]
     Active Substance: PERTUZUMAB
     Dosage: 420 MG, EVERY 3 WEEKS
     Route: 042
     Dates: start: 20180618, end: 20180618
  23. PERTUZUMAB [Suspect]
     Active Substance: PERTUZUMAB
     Dosage: 420 MG, EVERY 3 WEEKS
     Route: 042
     Dates: start: 20170619, end: 20170619
  24. PERTUZUMAB [Suspect]
     Active Substance: PERTUZUMAB
     Dosage: 420 MG, EVERY 3 WEEKS
     Route: 042
     Dates: start: 20170619, end: 20170619
  25. PERTUZUMAB [Suspect]
     Active Substance: PERTUZUMAB
     Dosage: 420 MG, EVERY 3 WEEKS
     Route: 042
     Dates: start: 20180709, end: 20181024
  26. PERTUZUMAB [Suspect]
     Active Substance: PERTUZUMAB
     Dosage: 420 MG, EVERY 3 WEEKS
     Route: 042
     Dates: start: 20180709, end: 20181024
  27. ADO-TRASTUZUMAB EMTANSINE [Suspect]
     Active Substance: ADO-TRASTUZUMAB EMTANSINE
     Indication: Breast cancer metastatic
     Dosage: 200 MG, EVERY 3 WEEKS
     Route: 042
     Dates: start: 20181122, end: 20201217
  28. ADO-TRASTUZUMAB EMTANSINE [Suspect]
     Active Substance: ADO-TRASTUZUMAB EMTANSINE
     Dosage: 200 MG, EVERY 3 WEEKS
     Route: 042
     Dates: start: 20181122, end: 20201217
  29. ADO-TRASTUZUMAB EMTANSINE [Suspect]
     Active Substance: ADO-TRASTUZUMAB EMTANSINE
     Dosage: 180 MG, EVERY 3 WEEKS
     Route: 042
     Dates: start: 20201217, end: 20210827
  30. ADO-TRASTUZUMAB EMTANSINE [Suspect]
     Active Substance: ADO-TRASTUZUMAB EMTANSINE
     Dosage: 180 MG, EVERY 3 WEEKS
     Route: 042
     Dates: start: 20201217, end: 20210827
  31. ADO-TRASTUZUMAB EMTANSINE [Suspect]
     Active Substance: ADO-TRASTUZUMAB EMTANSINE
     Dosage: 200 MG, EVERY 3 WEEKS
     Route: 042
     Dates: start: 20200514, end: 20201126
  32. ADO-TRASTUZUMAB EMTANSINE [Suspect]
     Active Substance: ADO-TRASTUZUMAB EMTANSINE
     Dosage: 200 MG, EVERY 3 WEEKS
     Route: 042
     Dates: start: 20200514, end: 20201126
  33. ADO-TRASTUZUMAB EMTANSINE [Suspect]
     Active Substance: ADO-TRASTUZUMAB EMTANSINE
     Dosage: 180 MG, EVERY 3 WEEKS
     Route: 042
     Dates: start: 20200225, end: 20200225
  34. ADO-TRASTUZUMAB EMTANSINE [Suspect]
     Active Substance: ADO-TRASTUZUMAB EMTANSINE
     Dosage: 180 MG, EVERY 3 WEEKS
     Route: 042
     Dates: start: 20200225, end: 20200225
  35. COTRIMOXAZOLE [Concomitant]
     Active Substance: SULFAMETHOXAZOLE\TRIMETHOPRIM
     Dosage: 480 MG, QD
     Route: 048
     Dates: start: 20170620
  36. DENOSUMAB [Concomitant]
     Active Substance: DENOSUMAB
     Dosage: UNK, MONTHLY
     Route: 058
  37. DEXAMETHASONE [Concomitant]
     Active Substance: DEXAMETHASONE
     Dosage: 8 MG
     Route: 048
     Dates: start: 20170620, end: 20171003
  38. DEXAMETHASONE [Concomitant]
     Active Substance: DEXAMETHASONE
     Dosage: 8 MG
     Route: 048
     Dates: start: 20201223, end: 20210102
  39. DEXAMETHASONE [Concomitant]
     Active Substance: DEXAMETHASONE
     Dosage: 4 MG, QD
     Route: 048
     Dates: start: 20210103, end: 20210103
  40. HYPROMELLOSES [Concomitant]
     Active Substance: HYPROMELLOSES
     Dosage: UNK
     Route: 065
     Dates: start: 20190410, end: 20190903
  41. LOPERAMIDE [Concomitant]
     Active Substance: LOPERAMIDE
     Dosage: 16 MG
     Route: 048
     Dates: start: 20170705, end: 20171003
  42. METOCLOPRAMIDE [Concomitant]
     Active Substance: METOCLOPRAMIDE
     Dosage: 10 MG
     Route: 048
     Dates: start: 20170620
  43. ORAMORPH SR SUSTAINED RELEASE [Concomitant]
     Active Substance: MORPHINE SULFATE
     Route: 048
  44. ACETAMINOPHEN [Concomitant]
     Active Substance: ACETAMINOPHEN
     Route: 048
  45. SIMVASTATIN [Concomitant]
     Active Substance: SIMVASTATIN
  46. ERGOCALCIFEROL [Concomitant]
     Active Substance: ERGOCALCIFEROL
  47. MORPHINE SULFATE [Concomitant]
     Active Substance: MORPHINE SULFATE
     Dosage: 10 MG
     Route: 048

REACTIONS (2)
  - Partial seizures [Recovering/Resolving]
  - Diarrhoea [Recovering/Resolving]

NARRATIVE: CASE EVENT DATE: 20211220
